FAERS Safety Report 8273883-5 (Version None)
Quarter: 2012Q2

REPORT INFORMATION
  Report Type: 
  Country: None (occurrence: None)
  Receive Date: 20120409
  Receipt Date: 20120330
  Transmission Date: 20120825
  Serious: Yes (Life-Threatening, Hospitalization, Disabling, Other)
  Sender: FDA-Public Use
  Company Number: 2010MA001325

PATIENT
  Sex: Male
  Weight: 61.2356 kg

DRUGS (29)
  1. LISINOPRIL [Concomitant]
  2. PANTOPRAZOLE [Concomitant]
  3. METOCLOPRAMIDE [Suspect]
     Indication: GASTROOESOPHAGEAL REFLUX DISEASE
     Dosage: 10 MG;;PO
     Route: 048
     Dates: start: 20070621, end: 20081101
  4. ALLOPURINOL [Concomitant]
  5. AMANTADINE HCL [Concomitant]
  6. ATIVAN [Concomitant]
  7. BENADRYL [Concomitant]
  8. COUMADIN [Concomitant]
  9. PRINIVIL [Concomitant]
  10. SIMVASTATIN [Concomitant]
  11. ASPIRIN [Concomitant]
  12. SYMMETREL [Concomitant]
  13. TYLENOL (CAPLET) [Concomitant]
  14. ZYPREXA [Concomitant]
  15. AZILECT [Concomitant]
  16. COMTAN [Concomitant]
  17. PACERONE [Concomitant]
  18. SEROQUEL [Concomitant]
  19. XANAX [Concomitant]
  20. ASPIRIN [Concomitant]
  21. CARBIDOPA AND LEVODOPA [Concomitant]
  22. LORPRESSOR [Concomitant]
  23. ZESTRIL [Concomitant]
  24. HALDOL [Concomitant]
  25. NEUPRO [Concomitant]
  26. AMOXICILLIN [Concomitant]
  27. KEPPRA [Concomitant]
  28. PROTONIX [Concomitant]
  29. ALPRAZOLAM [Concomitant]

REACTIONS (51)
  - CONFUSIONAL STATE [None]
  - ORAL PAIN [None]
  - HYPOPHAGIA [None]
  - RENAL FAILURE [None]
  - SPEECH DISORDER [None]
  - MENTAL DISORDER DUE TO A GENERAL MEDICAL CONDITION [None]
  - DISORIENTATION [None]
  - FATIGUE [None]
  - DELIRIUM [None]
  - FRUSTRATION [None]
  - COUGH [None]
  - DEMENTIA [None]
  - DYSSTASIA [None]
  - DEMENTIA ALZHEIMER'S TYPE [None]
  - BLOOD ELECTROLYTES ABNORMAL [None]
  - PSYCHOTIC DISORDER [None]
  - GAIT DISTURBANCE [None]
  - ARTERIOSCLEROSIS CORONARY ARTERY [None]
  - CARDIAC DISORDER [None]
  - MYOCARDIAL INFARCTION [None]
  - PAIN IN JAW [None]
  - CONTUSION [None]
  - INCORRECT DRUG ADMINISTRATION DURATION [None]
  - EXTRASYSTOLES [None]
  - MOVEMENT DISORDER [None]
  - TARDIVE DYSKINESIA [None]
  - EXTRAPYRAMIDAL DISORDER [None]
  - BRONCHITIS [None]
  - DEHYDRATION [None]
  - BRADYKINESIA [None]
  - WHEELCHAIR USER [None]
  - ATRIOVENTRICULAR BLOCK SECOND DEGREE [None]
  - BRUXISM [None]
  - TRISMUS [None]
  - ATRIAL FIBRILLATION [None]
  - DYSKINESIA [None]
  - MUSCLE RIGIDITY [None]
  - HYPERTENSION [None]
  - ATRIOVENTRICULAR BLOCK FIRST DEGREE [None]
  - PARKINSON'S DISEASE [None]
  - GRIMACING [None]
  - ACTIVITIES OF DAILY LIVING IMPAIRED [None]
  - FALL [None]
  - TACHYCARDIA [None]
  - VOMITING [None]
  - ABDOMINAL PAIN LOWER [None]
  - SINUS DISORDER [None]
  - IMMOBILE [None]
  - TREMOR [None]
  - DYSPHAGIA [None]
  - HALLUCINATION, VISUAL [None]
